FAERS Safety Report 5149525-4 (Version None)
Quarter: 2006Q4

REPORT INFORMATION
  Report Type: 
  Country: None (occurrence: None)
  Receive Date: 20061113
  Receipt Date: 20060315
  Transmission Date: 20070319
  Serious: No
  Sender: FDA-Public Use
  Company Number: US-GLAXOSMITHKLINE-A0597666A

PATIENT
  Age: 86 Year
  Sex: Female

DRUGS (2)
  1. COREG [Suspect]
     Indication: HYPERTENSION
     Dosage: 12.5MG TWICE PER DAY
     Route: 048
     Dates: start: 20060210
  2. COUMADIN [Concomitant]

REACTIONS (3)
  - FATIGUE [None]
  - JOINT SWELLING [None]
  - LETHARGY [None]
